FAERS Safety Report 16315634 (Version 1)
Quarter: 2019Q2

REPORT INFORMATION
  Report Type: Spontaneous
  Country: US (occurrence: US)
  Receive Date: 20190515
  Receipt Date: 20190515
  Transmission Date: 20190711
  Serious: Yes (Other)
  Sender: FDA-Public Use
  Company Number: US-MYLANLABS-2019M1044514

PATIENT
  Sex: Female
  Weight: 91 kg

DRUGS (3)
  1. DILAUDID [Concomitant]
     Active Substance: HYDROMORPHONE HYDROCHLORIDE
     Dosage: 4 MILLIGRAM, PRN
  2. FENTANYL TRANSDERMAL SYSTEM [Suspect]
     Active Substance: FENTANYL
     Dosage: UNK
     Dates: start: 2019
  3. FENTANYL TRANSDERMAL SYSTEM [Suspect]
     Active Substance: FENTANYL
     Indication: PAIN
     Dosage: UNK

REACTIONS (20)
  - Diplegia [Unknown]
  - Syncope [Unknown]
  - Coordination abnormal [Unknown]
  - Application site hypoaesthesia [Unknown]
  - Photosensitivity reaction [Unknown]
  - Sweat gland disorder [Unknown]
  - Anxiety [Unknown]
  - Dry mouth [Unknown]
  - Vision blurred [Unknown]
  - Insomnia [Recovered/Resolved]
  - Hallucination [Unknown]
  - Muscle twitching [Unknown]
  - Nausea [Unknown]
  - Micturition frequency decreased [Unknown]
  - Migraine [Unknown]
  - Suicidal ideation [Recovered/Resolved]
  - Weight decreased [Unknown]
  - Pyrexia [Unknown]
  - Depression [Unknown]
  - Vomiting [Unknown]

NARRATIVE: CASE EVENT DATE: 2019
